FAERS Safety Report 8408394-7 (Version None)
Quarter: 2012Q2

REPORT INFORMATION
  Report Type: 
  Country: None (occurrence: None)
  Receive Date: 20120604
  Receipt Date: 20120529
  Transmission Date: 20120825
  Serious: Yes (Hospitalization)
  Sender: FDA-Public Use
  Company Number: US-ELI_LILLY_AND_COMPANY-US201203003138

PATIENT
  Sex: Male

DRUGS (4)
  1. PROZAC [Concomitant]
  2. HUMATROPE [Suspect]
     Indication: GROWTH HORMONE DEFICIENCY
     Dosage: 1.4 MG, QD
     Dates: start: 20090714, end: 20110801
  3. VITAMIN D [Concomitant]
  4. MULTI-VITAMIN [Concomitant]

REACTIONS (4)
  - AGGRESSION [None]
  - OPPOSITIONAL DEFIANT DISORDER [None]
  - SOCIAL PHOBIA [None]
  - ANXIETY [None]
